FAERS Safety Report 12367003 (Version 2)
Quarter: 2016Q2

REPORT INFORMATION
  Report Type: Spontaneous
  Country: US (occurrence: US)
  Receive Date: 20160513
  Receipt Date: 20160611
  Transmission Date: 20160815
  Serious: No
  Sender: FDA-Public Use
  Company Number: US-009507513-1605USA003145

PATIENT
  Sex: Female

DRUGS (1)
  1. HEXADROL [Suspect]
     Active Substance: DEXAMETHASONE
     Indication: STATUS MIGRAINOSUS
     Dosage: 4 MG, BID
     Route: 048

REACTIONS (3)
  - Insomnia [Unknown]
  - Restlessness [Unknown]
  - Product use issue [Unknown]
